FAERS Safety Report 7374604-0 (Version None)
Quarter: 2011Q1

REPORT INFORMATION
  Report Type: 
  Country: None (occurrence: None)
  Receive Date: 20110325
  Receipt Date: 20100602
  Transmission Date: 20110831
  Serious: No
  Sender: FDA-Public Use
  Company Number: US-MYLANLABS-2010S1007608

PATIENT
  Age: 58 Year
  Sex: Male
  Weight: 79.38 kg

DRUGS (8)
  1. FOLIC ACID [Concomitant]
  2. METHOTREXATE TABLETS, USP [Suspect]
     Indication: PSORIASIS
     Route: 048
     Dates: start: 20100216
  3. RANITIDINE [Concomitant]
  4. OXYCODONE [Concomitant]
     Indication: BREAKTHROUGH PAIN
  5. OMEPRAZOLE [Concomitant]
  6. TEMAZEPAM [Concomitant]
  7. ACETAMINOPHEN [Concomitant]
  8. FENTANYL-100 [Suspect]
     Indication: BACK PAIN
     Dosage: CHANGED Q48H
     Route: 062
     Dates: start: 20080101

REACTIONS (4)
  - DRUG WITHDRAWAL SYNDROME [None]
  - BACK PAIN [None]
  - DRUG INEFFECTIVE [None]
  - DRUG INTERACTION [None]
